FAERS Safety Report 9014434 (Version 1)
Quarter: 2013Q1

REPORT INFORMATION
  Report Type: Report from Study
  Country: JP (occurrence: JP)
  Receive Date: 20130115
  Receipt Date: 20130115
  Transmission Date: 20140127
  Serious: Yes (Hospitalization)
  Sender: FDA-Public Use
  Company Number: JP-GLAXOSMITHKLINE-B0857643A

PATIENT
  Age: 72 Year
  Sex: Female
  Weight: 42 kg

DRUGS (5)
  1. GSK1841157 [Suspect]
     Indication: CHRONIC LYMPHOCYTIC LEUKAEMIA
     Dosage: 300MG PER DAY
     Dates: start: 20121210, end: 20121210
  2. GSK1841157 [Suspect]
     Indication: CHRONIC LYMPHOCYTIC LEUKAEMIA
     Dosage: 1000MG PER DAY
     Dates: start: 20121217, end: 20121217
  3. GSK1841157 [Suspect]
     Indication: CHRONIC LYMPHOCYTIC LEUKAEMIA
     Dosage: 1000MG PER DAY
     Dates: start: 20130109, end: 20130109
  4. CHLORAMBUCIL [Suspect]
     Indication: CHRONIC LYMPHOCYTIC LEUKAEMIA
     Dosage: 12MG PER DAY
     Route: 048
     Dates: start: 20121210, end: 20121216
  5. CHLORAMBUCIL [Suspect]
     Indication: CHRONIC LYMPHOCYTIC LEUKAEMIA
     Dosage: 12MG PER DAY
     Route: 048
     Dates: start: 20130109, end: 20130109

REACTIONS (3)
  - Hypoxia [Recovered/Resolved]
  - Blood pressure decreased [None]
  - Blood pH decreased [None]
